FAERS Safety Report 25259941 (Version 1)
Quarter: 2025Q2

REPORT INFORMATION
  Report Type: Spontaneous
  Country: US (occurrence: None)
  Receive Date: 20250430
  Receipt Date: 20250430
  Transmission Date: 20250716
  Serious: No
  Sender: FDA-CTU
  Company Number: None

PATIENT
  Age: 64 Year
  Sex: Female

DRUGS (1)
  1. CABOMETYX [Suspect]
     Active Substance: CABOZANTINIB S-MALATE
     Dosage: FREQUENCY : DAILY;?
     Route: 048
     Dates: start: 20240916

REACTIONS (3)
  - Oral mucosal blistering [None]
  - Mouth swelling [None]
  - Ear pain [None]

NARRATIVE: CASE EVENT DATE: 20250430
